FAERS Safety Report 4667662-5 (Version None)
Quarter: 2005Q2

REPORT INFORMATION
  Report Type: 
  Country: None (occurrence: None)
  Receive Date: 20050520
  Receipt Date: 20050512
  Transmission Date: 20051028
  Serious: Yes (Death)
  Sender: FDA-Public Use
  Company Number: GB-ABBOTT-05P-167-0300477-00

PATIENT
  Age: 84 Year
  Sex: Female

DRUGS (2)
  1. EPILIM LIQUID [Suspect]
     Indication: DEMENTIA ALZHEIMER'S TYPE
     Route: 048
  2. EPILIM LIQUID [Suspect]
     Route: 048

REACTIONS (4)
  - ABDOMINAL DISTENSION [None]
  - ACCIDENTAL OVERDOSE [None]
  - BACK DISORDER [None]
  - COMA [None]
